FAERS Safety Report 21583224 (Version 1)
Quarter: 2022Q4

REPORT INFORMATION
  Report Type: Spontaneous
  Country: DE (occurrence: DE)
  Receive Date: 20221111
  Receipt Date: 20221111
  Transmission Date: 20230112
  Serious: Yes (Hospitalization)
  Sender: FDA-Public Use
  Company Number: DE-DCGMA-21195103

PATIENT
  Age: 16 Year
  Sex: Male
  Weight: 94 kg

DRUGS (3)
  1. CLOZAPINE [Suspect]
     Active Substance: CLOZAPINE
     Indication: Psychotic disorder
     Dosage: DAILY DOSE: 100 MG MILLGRAM(S) EVERY DAYS 2 SEPARATED DOSES
     Route: 048
     Dates: start: 202107
  2. RIFAMPIN [Suspect]
     Active Substance: RIFAMPIN
     Indication: Tuberculosis of central nervous system
     Dosage: DAILY DOSE: 600 MG MILLGRAM(S) EVERY DAYS
     Route: 048
     Dates: start: 20210813, end: 20210923
  3. ISONIAZID\PYRIDOXINE [Suspect]
     Active Substance: ISONIAZID\PYRIDOXINE
     Indication: Tuberculosis of central nervous system
     Dosage: UNK UNK, QD
     Route: 048
     Dates: start: 20210813, end: 20211114

REACTIONS (3)
  - Pain in extremity [Recovered/Resolved]
  - Blood creatine phosphokinase increased [Recovered/Resolved]
  - Hepatic enzyme increased [Recovered/Resolved]

NARRATIVE: CASE EVENT DATE: 20210923
